FAERS Safety Report 9851848 (Version 1)
Quarter: 2014Q1

REPORT INFORMATION
  Report Type: Spontaneous
  Country: US (occurrence: None)
  Receive Date: 20140127
  Receipt Date: 20140127
  Transmission Date: 20141002
  Serious: Yes (Hospitalization)
  Sender: FDA-Public Use
  Company Number: 2014HINLIT0030

PATIENT
  Age: 56 Year
  Sex: Male

DRUGS (5)
  1. LITHIUM (LITHIUM) [Suspect]
     Indication: BIPOLAR DISORDER
     Dosage: 1200 MG, QD, IN DIVIDED DOSES, UNKNOWN
  2. LISINOPRIL [Concomitant]
  3. QUETIAPINE [Concomitant]
  4. RISPERIDONE [Concomitant]
  5. IBUPROFEN [Suspect]

REACTIONS (18)
  - Confusional state [None]
  - Tremor [None]
  - Diarrhoea [None]
  - Heart rate increased [None]
  - Disorientation [None]
  - Memory impairment [None]
  - Dysarthria [None]
  - Ataxia [None]
  - Cerebellar syndrome [None]
  - Tremor [None]
  - Drug level increased [None]
  - Leukocytosis [None]
  - Blood creatinine increased [None]
  - Blood urea increased [None]
  - Toxicity to various agents [None]
  - Arthralgia [None]
  - Intentional overdose [None]
  - Neurotoxicity [None]
